FAERS Safety Report 19204712 (Version 1)
Quarter: 2021Q2

REPORT INFORMATION
  Report Type: Report from Study
  Country: ES (occurrence: ES)
  Receive Date: 20210503
  Receipt Date: 20210503
  Transmission Date: 20210717
  Serious: Yes (Hospitalization)
  Sender: FDA-Public Use
  Company Number: ES-ROCHE-2111099

PATIENT
  Age: 53 Year
  Sex: Female
  Weight: 48.8 kg

DRUGS (6)
  1. BEVACIZUMAB. [Suspect]
     Active Substance: BEVACIZUMAB
     Indication: OVARIAN CANCER
     Dosage: DATE OF MOST RECENT DOSE OF BEVACIZUMAB (840 MG) PRIOR TO THE ADVERSE EVENT: 27/MAR/2018
     Route: 042
     Dates: start: 20180327
  2. PACLITAXEL. [Suspect]
     Active Substance: PACLITAXEL
     Indication: OVARIAN CANCER
     Dosage: DATE OF MOST RECENT DOSE OF PACLITAXEL (274 MG) PRIOR TO THE ADVERSE EVENTL 27/MAR/2018
     Route: 042
     Dates: start: 20180327
  3. DEXAMETHASONE. [Concomitant]
     Active Substance: DEXAMETHASONE
     Indication: VOMITING
     Route: 042
     Dates: start: 20180327, end: 20180327
  4. ATEZOLIZUMAB. [Suspect]
     Active Substance: ATEZOLIZUMAB
     Indication: OVARIAN CANCER
     Dosage: DATE OF MOST RECENT DOSE OF ATEZOLIZUMAB PRIOR TO THE ADVERSE EVENT: 27/MAR/2018
     Route: 042
     Dates: start: 20180327
  5. DEXAMETHASONE. [Concomitant]
     Active Substance: DEXAMETHASONE
     Indication: SUBILEUS
     Route: 042
     Dates: start: 20180403
  6. CARBOPLATIN. [Suspect]
     Active Substance: CARBOPLATIN
     Indication: OVARIAN CANCER
     Dosage: AREA UNDER THE CURVE (AUC): 6 MILLIGRAMS PER MILLILITER*MINUTE (MG/ML*MIN) ?MOST RECENT DOSE OF CARB
     Route: 042
     Dates: start: 20180327

REACTIONS (2)
  - Rectal haemorrhage [Recovered/Resolved]
  - Colitis [Recovered/Resolved]

NARRATIVE: CASE EVENT DATE: 20180411
